FAERS Safety Report 24979007 (Version 1)
Quarter: 2025Q1

REPORT INFORMATION
  Report Type: Report from Study
  Country: US (occurrence: US)
  Receive Date: 20250218
  Receipt Date: 20250218
  Transmission Date: 20250408
  Serious: Yes (Other)
  Sender: ALEXION PHARMACEUTICALS
  Company Number: US-AstraZeneca-2016SF30898

PATIENT
  Age: 71 Year

DRUGS (15)
  1. NEXIUM [Suspect]
     Active Substance: ESOMEPRAZOLE MAGNESIUM
  2. TAGRISSO [Suspect]
     Active Substance: OSIMERTINIB
  3. BREO ELLIPTA [Concomitant]
     Active Substance: FLUTICASONE FUROATE\VILANTEROL TRIFENATATE
  4. CYCLOBENZAPRINE [Concomitant]
     Active Substance: CYCLOBENZAPRINE
  5. HYDROCHLOROTHIAZIDE [Concomitant]
     Active Substance: HYDROCHLOROTHIAZIDE
  6. HYDROCODONE [Concomitant]
     Active Substance: HYDROCODONE
  7. ACETAMINOPHEN [Concomitant]
     Active Substance: ACETAMINOPHEN
  8. MORPHINE [Concomitant]
     Active Substance: MORPHINE
  9. PLAVIX [Concomitant]
     Active Substance: CLOPIDOGREL BISULFATE
  10. PREDNISOLONE [Concomitant]
     Active Substance: PREDNISOLONE
  11. PROAIR HFA [Concomitant]
     Active Substance: ALBUTEROL SULFATE
  12. SINGULAIR [Concomitant]
     Active Substance: MONTELUKAST SODIUM
  13. SPIRIVA RESPIMAT [Concomitant]
     Active Substance: TIOTROPIUM BROMIDE
  14. VITAMIN D3 [Concomitant]
     Active Substance: CHOLECALCIFEROL
  15. ZOLOFT [Concomitant]
     Active Substance: SERTRALINE HYDROCHLORIDE

REACTIONS (22)
  - Metastases to central nervous system [Unknown]
  - Metastases to lymph nodes [Unknown]
  - Muscle strain [Unknown]
  - Fatigue [Unknown]
  - Decreased appetite [Unknown]
  - Sleep disorder [Unknown]
  - Hypoacusis [Unknown]
  - Dyspnoea exertional [Unknown]
  - Dyspnoea [Unknown]
  - Nausea [Unknown]
  - Constipation [Unknown]
  - Pain in extremity [Unknown]
  - Back pain [Unknown]
  - Arthralgia [Unknown]
  - Nodule [Unknown]
  - Hypoaesthesia [Unknown]
  - Paraesthesia [Unknown]
  - Temperature intolerance [Unknown]
  - Contusion [Unknown]
  - Amnesia [Unknown]
  - Ear pain [Unknown]
  - Musculoskeletal discomfort [Unknown]
